FAERS Safety Report 22046283 (Version 2)
Quarter: 2023Q2

REPORT INFORMATION
  Report Type: Spontaneous
  Country: JP (occurrence: JP)
  Receive Date: 20230228
  Receipt Date: 20230414
  Transmission Date: 20230722
  Serious: Yes (Hospitalization, Other)
  Sender: FDA-Public Use
  Company Number: JP-CHUGAI-2023006054

PATIENT
  Age: 75 Year
  Sex: Female

DRUGS (3)
  1. TARCEVA [Suspect]
     Active Substance: ERLOTINIB HYDROCHLORIDE
     Indication: Lung adenocarcinoma
     Dosage: UNK UNK, UNKNOWN FREQ.
     Route: 048
     Dates: start: 201704, end: 20200317
  2. TARCEVA [Suspect]
     Active Substance: ERLOTINIB HYDROCHLORIDE
     Dosage: UNK UNK, UNKNOWN FREQ.
     Route: 048
     Dates: start: 20200414, end: 20210413
  3. TARCEVA [Suspect]
     Active Substance: ERLOTINIB HYDROCHLORIDE
     Dosage: UNK UNK, UNKNOWN FREQ.
     Route: 048
     Dates: start: 20210511, end: 20210611

REACTIONS (6)
  - Corneal perforation [Unknown]
  - Punctate keratitis [Recovering/Resolving]
  - Ulcerative keratitis [Unknown]
  - Dacryostenosis acquired [Unknown]
  - Graft delamination [Unknown]
  - Metastases to central nervous system [Unknown]

NARRATIVE: CASE EVENT DATE: 20200317
